FAERS Safety Report 8409143-9 (Version None)
Quarter: 2012Q2

REPORT INFORMATION
  Report Type: 
  Country: None (occurrence: None)
  Receive Date: 20120604
  Receipt Date: 20120529
  Transmission Date: 20120825
  Serious: Yes (Other)
  Sender: FDA-Public Use
  Company Number: PHHY2012TR045922

PATIENT
  Age: 5 Year
  Sex: Female

DRUGS (6)
  1. RADIOTHERAPY [Concomitant]
     Indication: ACUTE LYMPHOCYTIC LEUKAEMIA
     Dosage: 12 GY, UNK
  2. VINCRISTINE [Concomitant]
     Indication: ACUTE LYMPHOCYTIC LEUKAEMIA
     Dosage: 1.5 MG/M2/WEEKLY
  3. PREDNISONE [Suspect]
     Indication: ACUTE LYMPHOCYTIC LEUKAEMIA
     Dosage: 60 MG/M2/DAY
  4. METHOTREXATE [Concomitant]
     Dosage: 12 MG, UNK
     Route: 037
  5. ELSPAR [Suspect]
     Indication: ACUTE LYMPHOCYTIC LEUKAEMIA
     Dosage: 500 IU/M2, UNK
  6. METHOTREXATE [Concomitant]
     Indication: ACUTE LYMPHOCYTIC LEUKAEMIA
     Dosage: 1 G, UNK

REACTIONS (10)
  - PROTEIN TOTAL DECREASED [None]
  - HYPERLIPIDAEMIA [None]
  - HYPERCHOLESTEROLAEMIA [None]
  - PSEUDOHYPONATRAEMIA [None]
  - RED BLOOD CELL COUNT DECREASED [None]
  - HAEMOGLOBIN INCREASED [None]
  - HYPERTRIGLYCERIDAEMIA [None]
  - HAEMATOCRIT DECREASED [None]
  - BLOOD ALBUMIN DECREASED [None]
  - MEAN CELL VOLUME DECREASED [None]
